FAERS Safety Report 4642184-6 (Version None)
Quarter: 2005Q2

REPORT INFORMATION
  Report Type: 
  Country: None (occurrence: None)
  Receive Date: 20050421
  Receipt Date: 20050421
  Transmission Date: 20051028
  Serious: Yes (Life-Threatening, Hospitalization)
  Sender: FDA-Public Use
  Company Number: None

PATIENT
  Sex: Male
  Weight: 23.1 kg

DRUGS (6)
  1. TEMOZOLOMIDE [Suspect]
     Indication: BRAIN STEM GLIOMA
     Dosage: 85 MG PO Q DAY
     Route: 048
     Dates: start: 20050407, end: 20050418
  2. RADIATION THERAPY [Suspect]
     Dosage: 180 C GY / DAY
     Dates: start: 20050411, end: 20050415
  3. RADIATION THERAPY [Suspect]
     Dosage: 180 C GY / DAY
     Dates: start: 20050407
  4. RADIATION THERAPY [Suspect]
     Dosage: 180 C GY / DAY
     Dates: start: 20050408
  5. RADIATION THERAPY [Suspect]
     Dosage: 180 C GY / DAY
     Dates: start: 20050418
  6. DECADRON [Concomitant]

REACTIONS (17)
  - COORDINATION ABNORMAL [None]
  - COUGH [None]
  - DEPRESSED LEVEL OF CONSCIOUSNESS [None]
  - DISEASE PROGRESSION [None]
  - DROOLING [None]
  - DYSPHAGIA [None]
  - DYSPNOEA [None]
  - HEADACHE [None]
  - HEART RATE INCREASED [None]
  - HEMIPARESIS [None]
  - MUSCULOSKELETAL STIFFNESS [None]
  - ORAL INTAKE REDUCED [None]
  - OXYGEN SATURATION DECREASED [None]
  - POSTURING [None]
  - RESPIRATORY RATE INCREASED [None]
  - SPEECH DISORDER [None]
  - STRABISMUS [None]
